FAERS Safety Report 8208010-3 (Version None)
Quarter: 2012Q1

REPORT INFORMATION
  Report Type: 
  Country: None (occurrence: None)
  Receive Date: 20120314
  Receipt Date: 20120229
  Transmission Date: 20120608
  Serious: Yes (Other)
  Sender: FDA-Public Use
  Company Number: CA-UCBSA-047024

PATIENT
  Age: 51 Year
  Sex: Female
  Weight: 56.616 kg

DRUGS (14)
  1. METHOTREXATE [Concomitant]
     Indication: RHEUMATOID ARTHRITIS
     Route: 058
  2. VITAMIN B-12 [Concomitant]
     Indication: VITAMIN SUPPLEMENTATION
     Dosage: DOSE UNKNOWN
  3. IRON [Concomitant]
     Indication: MINERAL SUPPLEMENTATION
     Dosage: DOSE UNKNOWN
  4. VALTREX [Concomitant]
     Indication: ANTIVIRAL TREATMENT
     Route: 048
     Dates: start: 20070101
  5. AMITRIPTYLINE HCL [Concomitant]
     Indication: ANTIDEPRESSANT THERAPY
     Dosage: DOSE UNKNOWN,NO OF INTAKES-QHS.
     Route: 048
  6. PERIOT [Concomitant]
     Dosage: DOSE UNKNOWN
  7. CIMZIA [Suspect]
     Route: 058
     Dates: start: 20110615, end: 20110713
  8. ACETAMINOPHEN [Concomitant]
     Indication: PAIN
     Dosage: 1 - 2 TABLETS
     Route: 048
     Dates: start: 20070101
  9. NEW ANTIDEPRESSANT [Concomitant]
     Indication: DEPRESSION
     Route: 048
     Dates: start: 20110101
  10. CIMZIA [Suspect]
     Indication: RHEUMATOID ARTHRITIS
     Route: 058
     Dates: start: 20110727
  11. FOLIC ACID [Concomitant]
     Indication: VITAMIN SUPPLEMENTATION
     Route: 048
     Dates: start: 20070101
  12. PERIOT [Concomitant]
     Dosage: DOSE INCREASED
  13. ARTHROTEC [Suspect]
     Indication: PAIN
  14. OXYCODONE HCL [Concomitant]
     Indication: RHEUMATOID ARTHRITIS
     Dosage: 15-30 MG EVERY DAY AT BEDTIME
     Route: 048
     Dates: start: 20110101

REACTIONS (4)
  - ANAEMIA [None]
  - GASTROINTESTINAL HAEMORRHAGE [None]
  - INFLUENZA [None]
  - DEPRESSED MOOD [None]
